FAERS Safety Report 5742349-6 (Version None)
Quarter: 2008Q2

REPORT INFORMATION
  Report Type: 
  Country: None (occurrence: None)
  Receive Date: 20080514
  Receipt Date: 20070629
  Transmission Date: 20081010
  Serious: Yes (Life-Threatening)
  Sender: FDA-Public Use
  Company Number: US200707001191

PATIENT
  Sex: Female

DRUGS (1)
  1. KEFLEX [Suspect]

REACTIONS (4)
  - CRYSTAL URINE PRESENT [None]
  - HAEMATURIA [None]
  - INTENTIONAL OVERDOSE [None]
  - SUICIDE ATTEMPT [None]
